FAERS Safety Report 19949160 (Version 1)
Quarter: 2021Q4

REPORT INFORMATION
  Report Type: Spontaneous
  Country: IT (occurrence: IT)
  Receive Date: 20211013
  Receipt Date: 20211013
  Transmission Date: 20220303
  Serious: Yes (Other)
  Sender: FDA-Public Use
  Company Number: IT-STRIDES ARCOLAB LIMITED-2021SP028547

PATIENT
  Age: 23 Year
  Sex: Female

DRUGS (3)
  1. ZOLPIDEM [Suspect]
     Active Substance: ZOLPIDEM TARTRATE
     Indication: Insomnia
     Dosage: 10 MILLIGRAM, AT BED TIME
     Route: 048
  2. ZOLPIDEM [Suspect]
     Active Substance: ZOLPIDEM TARTRATE
     Dosage: 30 MILLIGRAM/DAY
     Route: 065
  3. ALCOHOL [Suspect]
     Active Substance: ALCOHOL
     Indication: Product used for unknown indication
     Dosage: UNK
     Route: 065

REACTIONS (5)
  - Disinhibition [Recovered/Resolved]
  - Psychomotor hyperactivity [Recovered/Resolved]
  - Euphoric mood [Recovered/Resolved]
  - Amnesia [Recovered/Resolved]
  - Drug abuse [Recovered/Resolved]
